FAERS Safety Report 6281890 (Version 31)
Quarter: 2013Q3

REPORT INFORMATION
  Report Type: Spontaneous
  Country: US (occurrence: US)
  Receive Date: 20070406
  Receipt Date: 20130913
  Transmission Date: 20140515
  Serious: Yes (Death, Hospitalization, Other)
  Sender: FDA-Public Use
  Company Number: PHEH2007US03601

PATIENT
  Age: 62 Year
  Sex: Female
  Weight: 61.68 kg

DRUGS (38)
  1. ZOMETA [Suspect]
     Indication: BREAST CANCER
     Dosage: 4 MG,
     Route: 042
  2. AREDIA [Suspect]
     Dosage: 90 MG,
     Dates: start: 20020304
  3. TAMOXIFEN [Concomitant]
  4. RADIATION THERAPY [Concomitant]
  5. NAVELBINE ^ASTA MEDICA^ [Concomitant]
  6. ALOXI [Concomitant]
  7. DECADRON                                /CAN/ [Concomitant]
  8. PROCRIT                            /00909301/ [Concomitant]
  9. DOXIL [Concomitant]
  10. RED BLOOD CELLS [Concomitant]
  11. MORPHINE [Concomitant]
  12. CHEMOTHERAPEUTICS NOS [Concomitant]
  13. LETROZOLE [Concomitant]
  14. LORTAB [Concomitant]
  15. MS CONTIN [Concomitant]
     Dosage: 100 MG, BID
  16. NEURONTIN [Concomitant]
     Dosage: 300 MG, UNK
  17. PREDNISONE [Concomitant]
     Dosage: 20 MG, UNK
  18. FEMARA [Concomitant]
     Dosage: 2.5 MG, UNK
  19. CEPHALEXIN [Concomitant]
     Dosage: 500 MG, UNK
  20. ANZEMET [Concomitant]
  21. TAXOTERE [Concomitant]
  22. BENADRYL ^ACHE^ [Concomitant]
  23. FASLODEX [Concomitant]
  24. COMPAZINE [Concomitant]
  25. SENOKOT                                 /UNK/ [Concomitant]
  26. DEXAMETHASONE [Concomitant]
  27. ZOFRAN [Concomitant]
  28. ROCEPHIN [Concomitant]
     Route: 042
  29. ARANESP [Concomitant]
     Indication: ANAEMIA
  30. MSIR [Concomitant]
  31. ASPIRIN ^BAYER^ [Concomitant]
  32. PREVACID [Concomitant]
  33. ZOLOFT (SERTRALINE HYDROCHLORIDE) [Concomitant]
  34. VITAMINS [Concomitant]
  35. LISINOPRIL [Concomitant]
  36. SIMVASTATIN [Concomitant]
  37. GABAPENTIN [Concomitant]
     Dosage: 300 MG, QHS
  38. PROTONIX [Concomitant]

REACTIONS (106)
  - Death [Fatal]
  - Pneumonia [Unknown]
  - Osteonecrosis of jaw [Unknown]
  - Pain [Unknown]
  - Bone loss [Unknown]
  - Infection [Unknown]
  - Bone disorder [Unknown]
  - Deformity [Unknown]
  - Hypophagia [Unknown]
  - Emotional distress [Unknown]
  - Anxiety [Unknown]
  - General physical health deterioration [Unknown]
  - Decreased interest [Unknown]
  - Discomfort [Unknown]
  - Pleural effusion [Unknown]
  - Aspiration pleural cavity [Unknown]
  - Arthropathy [Unknown]
  - Osteoporosis [Unknown]
  - Hypoaesthesia [Unknown]
  - Hypoaesthesia oral [Unknown]
  - Decreased appetite [Unknown]
  - Fatigue [Unknown]
  - Anaemia [Unknown]
  - Dehydration [Unknown]
  - Nausea [Unknown]
  - Mouth ulceration [Unknown]
  - Weight decreased [Unknown]
  - Hand-foot-and-mouth disease [Unknown]
  - Faeces discoloured [Unknown]
  - Paraesthesia [Unknown]
  - Gastrooesophageal reflux disease [Unknown]
  - Vision blurred [Unknown]
  - Seborrhoeic keratosis [Unknown]
  - Arthralgia [Unknown]
  - Libido decreased [Unknown]
  - Polyp [Unknown]
  - Hypertension [Unknown]
  - Depressed mood [Unknown]
  - Malaise [Unknown]
  - Hepatic cancer metastatic [Unknown]
  - Hip fracture [Unknown]
  - Melaena [Unknown]
  - Respiratory distress [Unknown]
  - Brain cancer metastatic [Unknown]
  - Bone cancer [Unknown]
  - Scoliosis [Unknown]
  - Bone lesion [Unknown]
  - Back pain [Recovered/Resolved]
  - Renal cyst [Unknown]
  - Arteriosclerosis [Unknown]
  - Constipation [Unknown]
  - Fluid retention [Recovered/Resolved]
  - Rectal haemorrhage [Unknown]
  - Adenoma benign [Unknown]
  - Facet joint syndrome [Unknown]
  - Bronchitis [Unknown]
  - Asthenia [Unknown]
  - Femur fracture [Unknown]
  - Barrett^s oesophagus [Unknown]
  - Pulmonary mass [Unknown]
  - Chest discomfort [Unknown]
  - Dyspnoea [Unknown]
  - Lung hyperinflation [Unknown]
  - Haemoptysis [Unknown]
  - Atelectasis [Unknown]
  - Chest pain [Unknown]
  - Lung infiltration [Unknown]
  - Cardiotoxicity [Unknown]
  - Lymphadenopathy [Unknown]
  - Haemorrhoids [Unknown]
  - Haemoglobin decreased [Unknown]
  - Hiatus hernia [Unknown]
  - Spinal osteoarthritis [Unknown]
  - Radiculopathy [Unknown]
  - Myofascial pain syndrome [Unknown]
  - Neck pain [Unknown]
  - Carpal tunnel syndrome [Not Recovered/Not Resolved]
  - Cataract [Unknown]
  - Hypercholesterolaemia [Unknown]
  - Spondylitic myelopathy [Unknown]
  - Cervical spinal stenosis [Unknown]
  - Photophobia [Unknown]
  - Vitreous floaters [Unknown]
  - Intervertebral disc protrusion [Unknown]
  - Sinusitis [Unknown]
  - Skin lesion [Unknown]
  - Neoplasm skin [Unknown]
  - Lentigo [Unknown]
  - Bundle branch block left [Unknown]
  - Pneumothorax [Unknown]
  - Urinary tract infection [Unknown]
  - Fall [Unknown]
  - Helicobacter gastritis [Unknown]
  - Mental status changes [Unknown]
  - Oedema peripheral [Unknown]
  - Jaundice cholestatic [Unknown]
  - Tachycardia [Unknown]
  - Upper respiratory tract infection [Unknown]
  - Compression fracture [Unknown]
  - Foot fracture [Unknown]
  - Tremor [Unknown]
  - Metastases to bone [Unknown]
  - Metastases to spine [Unknown]
  - Spinal compression fracture [Unknown]
  - Dilatation intrahepatic duct acquired [Unknown]
  - Osteosclerosis [Unknown]
